FAERS Safety Report 20517121 (Version 3)
Quarter: 2022Q3

REPORT INFORMATION
  Report Type: Spontaneous
  Country: JP (occurrence: JP)
  Receive Date: 20220225
  Receipt Date: 20220706
  Transmission Date: 20221027
  Serious: Yes (Other)
  Sender: FDA-Public Use
  Company Number: JP-Vifor Pharma-VIT-2018-12776

PATIENT
  Age: 49 Year
  Sex: Male
  Weight: 83 kg

DRUGS (23)
  1. VELPHORO [Suspect]
     Active Substance: SUCROFERRIC OXYHYDROXIDE
     Indication: Hyperphosphataemia
     Route: 048
     Dates: start: 20180514, end: 20180527
  2. VELPHORO [Suspect]
     Active Substance: SUCROFERRIC OXYHYDROXIDE
     Route: 048
     Dates: start: 20180528, end: 20181111
  3. VELPHORO [Suspect]
     Active Substance: SUCROFERRIC OXYHYDROXIDE
     Route: 048
     Dates: start: 20181112, end: 20181218
  4. VELPHORO [Suspect]
     Active Substance: SUCROFERRIC OXYHYDROXIDE
     Route: 048
     Dates: start: 20181219, end: 20190127
  5. VELPHORO [Suspect]
     Active Substance: SUCROFERRIC OXYHYDROXIDE
     Route: 048
     Dates: start: 20190128, end: 20190206
  6. EPOETIN ALFA BS [Concomitant]
     Active Substance: ERYTHROPOIETIN
     Dates: start: 20180514, end: 20180522
  7. EPOETIN ALFA BS [Concomitant]
     Active Substance: ERYTHROPOIETIN
     Dosage: 1500-3000-1500 UNITS/WEEK
     Dates: start: 20180523, end: 20180605
  8. EPOETIN ALFA BS [Concomitant]
     Active Substance: ERYTHROPOIETIN
     Dates: start: 20180606, end: 20180703
  9. EPOETIN ALFA BS [Concomitant]
     Active Substance: ERYTHROPOIETIN
     Dates: start: 20180704, end: 20180720
  10. ALFAROL [Concomitant]
     Active Substance: ALFACALCIDOL
     Indication: Hyperphosphataemia
     Route: 048
     Dates: start: 20161019
  11. ALFAROL [Concomitant]
     Active Substance: ALFACALCIDOL
     Indication: Hyperparathyroidism secondary
  12. CALTAN [Concomitant]
     Active Substance: CALCIUM CARBONATE
     Indication: Hyperphosphataemia
     Route: 048
  13. CALTAN [Concomitant]
     Active Substance: CALCIUM CARBONATE
     Indication: Hyperparathyroidism secondary
  14. CARVEDILOL [Concomitant]
     Active Substance: CARVEDILOL
     Indication: Hypertension
     Route: 048
  15. NEXIUM [Concomitant]
     Active Substance: ESOMEPRAZOLE MAGNESIUM
     Indication: Gastritis
     Route: 048
  16. ECABET SODIUM [Concomitant]
     Active Substance: ECABET SODIUM
     Indication: Gastritis
     Route: 048
     Dates: start: 20170715
  17. LASIX [Concomitant]
     Active Substance: FUROSEMIDE
     Indication: Hypertension
     Route: 048
  18. DEPAS [Concomitant]
     Indication: Insomnia
     Route: 048
  19. ALESION [Concomitant]
     Active Substance: EPINASTINE HYDROCHLORIDE
     Indication: Pruritus
     Route: 048
     Dates: start: 20180221
  20. MIYA-BM [Concomitant]
     Active Substance: CLOSTRIDIUM BUTYRICUM SPORES STRAIN M-55
     Route: 048
  21. ASPIRIN [Concomitant]
     Active Substance: ASPIRIN
     Indication: Shunt occlusion
     Route: 048
     Dates: start: 20181114
  22. BIXALOMER [Concomitant]
     Active Substance: BIXALOMER
     Route: 048
     Dates: start: 20190128
  23. FOSRENOL [Concomitant]
     Active Substance: LANTHANUM CARBONATE
     Indication: Hyperphosphataemia
     Route: 048
     Dates: start: 20180321, end: 20180528

REACTIONS (3)
  - Artificial blood vessel occlusion [Recovered/Resolved]
  - Haemoglobin increased [Not Recovered/Not Resolved]
  - Haematocrit increased [Not Recovered/Not Resolved]

NARRATIVE: CASE EVENT DATE: 20180701
